FAERS Safety Report 7945513-0 (Version None)
Quarter: 2011Q4

REPORT INFORMATION
  Report Type: 
  Country: None (occurrence: None)
  Receive Date: 20111129
  Receipt Date: 20111118
  Transmission Date: 20120403
  Serious: Yes (Other)
  Sender: FDA-Public Use
  Company Number: US-SANOFI-AVENTIS-2011SA076713

PATIENT
  Age: 65 Year
  Sex: Male

DRUGS (16)
  1. ESTRAMUSTINE [Suspect]
     Indication: PROSTATE CANCER
     Dosage: SIX CYCLES
     Route: 065
     Dates: end: 20041201
  2. DOCETAXEL [Suspect]
     Route: 065
  3. AMOXICILLIN AND CLAVULANATE POTASSIUM [Concomitant]
     Route: 048
     Dates: start: 20090901
  4. PACLITAXEL [Suspect]
     Route: 065
     Dates: start: 20050101
  5. BEVACIZUMAB [Suspect]
     Indication: PROSTATE CANCER
     Route: 065
     Dates: start: 20080501
  6. ZOLEDRONIC ACID [Concomitant]
     Route: 042
     Dates: end: 20041201
  7. PACLITAXEL [Suspect]
     Indication: PROSTATE CANCER
     Dosage: GIVEN THREE TIMES A WEEK EVERY FOUR WEEKS
     Route: 065
     Dates: end: 20100601
  8. BEVACIZUMAB [Suspect]
     Route: 065
     Dates: end: 20100601
  9. SORAFENIB [Suspect]
     Indication: PROSTATE CANCER
     Dosage: DAILY GIVEN FIVE TIMES PER WEEK
     Route: 048
     Dates: start: 20080501
  10. KETOCONAZOLE [Concomitant]
  11. ESTRAMUSTINE [Suspect]
     Route: 065
  12. SORAFENIB [Suspect]
     Dosage: GIVEN FIVE TIMES PER WEEK
     Route: 048
     Dates: end: 20100601
  13. ZOLEDRONIC ACID [Concomitant]
     Dates: start: 20051101, end: 20080101
  14. DOCETAXEL [Suspect]
     Indication: PROSTATE CANCER
     Dosage: SIX CYCLES
     Route: 065
     Dates: end: 20041201
  15. PACLITAXEL [Suspect]
     Dosage: GIVEN THREE TIMES A WEEK, EVERY FOUR WEEKS
     Route: 065
     Dates: start: 20080501
  16. ALIMTA [Concomitant]

REACTIONS (5)
  - PAIN IN JAW [None]
  - CONDITION AGGRAVATED [None]
  - SWELLING FACE [None]
  - JAW FRACTURE [None]
  - OSTEONECROSIS OF JAW [None]
